FAERS Safety Report 7867863-9 (Version None)
Quarter: 2011Q4

REPORT INFORMATION
  Report Type: 
  Country: None (occurrence: None)
  Receive Date: 20111028
  Receipt Date: 20110414
  Transmission Date: 20120403
  Serious: Yes (Other)
  Sender: FDA-Public Use
  Company Number: US-BAYER-200939163NA

PATIENT
  Age: 70 Year
  Sex: Male
  Weight: 107 kg

DRUGS (27)
  1. OMNISCAN [Suspect]
     Indication: NUCLEAR MAGNETIC RESONANCE IMAGING
  2. IMDUR [Concomitant]
  3. MAVIK [Concomitant]
     Dates: start: 20040101, end: 20050101
  4. NEPHROCAPS [Concomitant]
     Dosage: 1 DF (DAILY DOSE), QD,
     Dates: start: 20060602
  5. NOVOLIN 70/30 [Concomitant]
  6. MULTIHANCE [Suspect]
     Indication: NUCLEAR MAGNETIC RESONANCE IMAGING
  7. PRANDIN [Concomitant]
  8. VASOTEC [Concomitant]
  9. PHOSLO [Concomitant]
     Dates: start: 20060602
  10. SOLU-MEDROL [Concomitant]
     Route: 042
  11. LASIX [Concomitant]
     Indication: FLUID RETENTION
     Dosage: 20 MG (DAILY DOSE), QD,
     Dates: start: 20040416
  12. ZETIA [Concomitant]
     Dosage: 12 MG (DAILY DOSE), QD,
     Dates: start: 20040416
  13. MAGNEVIST [Suspect]
     Indication: NUCLEAR MAGNETIC RESONANCE IMAGING
     Dates: start: 20060607, end: 20060607
  14. OPTIMARK [Suspect]
     Indication: NUCLEAR MAGNETIC RESONANCE IMAGING
     Dates: start: 20060816, end: 20060816
  15. LANTUS [Concomitant]
     Dosage: 25 U (DAILY DOSE), QD,
  16. COREG [Concomitant]
     Indication: CARDIAC FAILURE CHRONIC
     Dates: start: 20040416
  17. ASPIRIN [Concomitant]
     Indication: ANTIPLATELET THERAPY
     Dosage: 81 MG (DAILY DOSE), QD,
     Dates: start: 19990101
  18. INVANZ [Concomitant]
     Dosage: 6 WEEKS
     Dates: start: 20060602
  19. SOLIVITO N [VIT C,VIT H,B12,B9,B3,PANTOTHENIC AC,B6,B2,B1 HCL] [Concomitant]
     Dosage: 1 DF (DAILY DOSE), QD,
     Dates: start: 20060602
  20. PROHANCE [Suspect]
     Indication: NUCLEAR MAGNETIC RESONANCE IMAGING
  21. EPOGEN [Concomitant]
     Indication: ANAEMIA
     Dosage: 15000 U (DAILY DOSE), ,
     Dates: start: 20051110, end: 20051112
  22. LASIX [Concomitant]
     Indication: BLOOD PRESSURE ABNORMAL
  23. VANCOMYCIN HCL [Concomitant]
     Dosage: WITH THE NEXT 7 HEMODIALYSIS SESSIONS
  24. FERROUS SULFATE TAB [Concomitant]
     Dates: start: 20060602
  25. INSULIN MIXTARD HUMAN [INSULIN HUMAN,INSULIN HUMAN INJECTION, ISOP [Concomitant]
  26. AVANDIA [Concomitant]
     Dates: start: 20040101
  27. METFORMIN [Concomitant]

REACTIONS (17)
  - GENERAL PHYSICAL HEALTH DETERIORATION [None]
  - DEFORMITY [None]
  - SKIN INDURATION [None]
  - MUSCULAR WEAKNESS [None]
  - RASH MACULAR [None]
  - SCAB [None]
  - NEPHROGENIC SYSTEMIC FIBROSIS [None]
  - EYE DISORDER [None]
  - ARTHRALGIA [None]
  - SKIN TIGHTNESS [None]
  - SCAR [None]
  - DERMATITIS BULLOUS [None]
  - JOINT RANGE OF MOTION DECREASED [None]
  - PAIN IN EXTREMITY [None]
  - PAIN [None]
  - BONE PAIN [None]
  - OEDEMA PERIPHERAL [None]
